FAERS Safety Report 10581726 (Version 1)
Quarter: 2014Q4

REPORT INFORMATION
  Report Type: Spontaneous
  Country: GB (occurrence: GB)
  Receive Date: 20141113
  Receipt Date: 20141113
  Transmission Date: 20150529
  Serious: Yes (Death, Hospitalization)
  Sender: FDA-Public Use
  Company Number: PHFR2014GB007844

PATIENT
  Age: 73 Year
  Sex: Female

DRUGS (2)
  1. AMANTADINE [Suspect]
     Active Substance: AMANTADINE
     Indication: PARKINSON^S DISEASE
     Dosage: 1 DF, QD
     Dates: start: 201203
  2. AMANTADINE [Suspect]
     Active Substance: AMANTADINE
     Dosage: 2 DF, QD

REACTIONS (4)
  - Stevens-Johnson syndrome [Fatal]
  - Rash [Fatal]
  - General physical health deterioration [Fatal]
  - Dizziness [Fatal]
